FAERS Safety Report 6131784-2 (Version None)
Quarter: 2009Q1

REPORT INFORMATION
  Report Type: 
  Country: None (occurrence: None)
  Receive Date: 20090325
  Receipt Date: 20090310
  Transmission Date: 20090719
  Serious: Yes (Hospitalization)
  Sender: FDA-Public Use
  Company Number: FR-GENENTECH-279477

PATIENT
  Age: 54 Year
  Sex: Male

DRUGS (6)
  1. MABTHERA [Suspect]
     Indication: RHEUMATOID ARTHRITIS
     Dosage: UNK
     Route: 042
     Dates: start: 20080201, end: 20081101
  2. METHOTREXATE SODIUM [Suspect]
     Indication: RHEUMATOID ARTHRITIS
     Dosage: 15 MG, 1/WEEK
     Route: 065
  3. ESCITALOPRAM [Concomitant]
     Indication: ANXIETY
  4. CORTANCYL [Concomitant]
     Indication: RHEUMATOID ARTHRITIS
  5. ZELITREX [Concomitant]
     Indication: HERPES VIRUS INFECTION
  6. PROFENID [Concomitant]
     Indication: DRUG USE FOR UNKNOWN INDICATION

REACTIONS (1)
  - LUNG NEOPLASM [None]
